FAERS Safety Report 12857275 (Version 1)
Quarter: 2016Q4

REPORT INFORMATION
  Report Type: Spontaneous
  Country: US (occurrence: US)
  Receive Date: 20161018
  Receipt Date: 20161018
  Transmission Date: 20170207
  Serious: No
  Sender: FDA-Public Use
  Company Number: US-APOTEX-2016AP010294

PATIENT

DRUGS (1)
  1. FLUTICASONE PROPIONATE NASAL SPRAY USP [Suspect]
     Active Substance: FLUTICASONE PROPIONATE
     Indication: EUSTACHIAN TUBE DISORDER
     Dosage: UNK
     Route: 065

REACTIONS (3)
  - Muscle spasms [Unknown]
  - Cough [Unknown]
  - Neck pain [Recovering/Resolving]
